FAERS Safety Report 7922873-8 (Version None)
Quarter: 2011Q4

REPORT INFORMATION
  Report Type: 
  Country: None (occurrence: None)
  Receive Date: 20111117
  Receipt Date: 20110729
  Transmission Date: 20120403
  Serious: No
  Sender: FDA-Public Use
  Company Number: US-ALLERGAN-1110472US

PATIENT
  Sex: Female

DRUGS (1)
  1. LASTACAFT [Suspect]
     Indication: EYE PRURITUS
     Dosage: 1 GTT, SINGLE
     Route: 047

REACTIONS (1)
  - SOMNOLENCE [None]
